FAERS Safety Report 17655291 (Version 4)
Quarter: 2020Q3

REPORT INFORMATION
  Report Type: Spontaneous
  Country: US (occurrence: US)
  Receive Date: 20200410
  Receipt Date: 20200727
  Transmission Date: 20201102
  Serious: No
  Sender: FDA-Public Use
  Company Number: US-SA-2020SA087504

PATIENT

DRUGS (3)
  1. DUPIXENT [Suspect]
     Active Substance: DUPILUMAB
     Indication: DERMATITIS ATOPIC
     Dosage: 300 MG, QOW
     Route: 058
     Dates: start: 202001, end: 2020
  2. LISINOPRIL. [Concomitant]
     Active Substance: LISINOPRIL
  3. TOBRAMYCIN. [Concomitant]
     Active Substance: TOBRAMYCIN

REACTIONS (8)
  - Swelling of eyelid [Recovered/Resolved]
  - Eye irritation [Recovering/Resolving]
  - Urticaria [Unknown]
  - Pustule [Unknown]
  - Conjunctivitis [Recovered/Resolved]
  - Hordeolum [Recovered/Resolved]
  - Rash macular [Unknown]
  - Blepharitis [Recovered/Resolved]

NARRATIVE: CASE EVENT DATE: 2020
